FAERS Safety Report 23996231 (Version 1)
Quarter: 2024Q2

REPORT INFORMATION
  Report Type: Spontaneous
  Country: US (occurrence: None)
  Receive Date: 20240620
  Receipt Date: 20240620
  Transmission Date: 20240716
  Serious: Yes (Hospitalization)
  Sender: FDA-Public Use
  Company Number: None

PATIENT
  Age: 20 Year
  Sex: Male
  Weight: 66.2 kg

DRUGS (4)
  1. CYCLOPHOSPHAMIDE [Suspect]
     Active Substance: CYCLOPHOSPHAMIDE
     Dates: end: 20240523
  2. DACTINOMYCIN [Suspect]
     Active Substance: DACTINOMYCIN
     Dates: end: 20240405
  3. VINCRISTINE SULFATE [Suspect]
     Active Substance: VINCRISTINE SULFATE
     Dates: end: 20240606
  4. VINORELBINE TARTRATE [Suspect]
     Active Substance: VINORELBINE TARTRATE
     Dates: end: 20240530

REACTIONS (9)
  - Stomatitis [None]
  - Nausea [None]
  - Peripheral sensory neuropathy [None]
  - Neurotoxicity [None]
  - Pain in extremity [None]
  - Paraesthesia [None]
  - Loss of proprioception [None]
  - Oesophagitis [None]
  - Refusal of treatment by patient [None]

NARRATIVE: CASE EVENT DATE: 20240613
